FAERS Safety Report 16007299 (Version 1)
Quarter: 2019Q1

REPORT INFORMATION
  Report Type: Spontaneous
  Country: US (occurrence: US)
  Receive Date: 20190226
  Receipt Date: 20190226
  Transmission Date: 20190418
  Serious: Yes (Other)
  Sender: FDA-Public Use
  Company Number: US-ELI_LILLY_AND_COMPANY-US201902007780

PATIENT
  Sex: Male

DRUGS (2)
  1. DOCETAXEL. [Concomitant]
     Active Substance: DOCETAXEL
     Indication: NON-SMALL CELL LUNG CANCER
     Dosage: UNK, CYCLICAL
     Route: 065
  2. CYRAMZA [Suspect]
     Active Substance: RAMUCIRUMAB
     Indication: NON-SMALL CELL LUNG CANCER
     Dosage: UNK, CYCLICAL
     Route: 065

REACTIONS (2)
  - Gastrointestinal haemorrhage [Unknown]
  - Abdominal pain upper [Unknown]
